FAERS Safety Report 9866994 (Version 1)
Quarter: 2014Q1

REPORT INFORMATION
  Report Type: Spontaneous
  Country: US (occurrence: None)
  Receive Date: 20140131
  Receipt Date: 20140131
  Transmission Date: 20141002
  Serious: Yes (Disabling, Other)
  Sender: FDA-Public Use
  Company Number: 1401-0178

PATIENT
  Sex: Male

DRUGS (1)
  1. EYLEA (AFLIBERCEPT)(INJECTION)(AFLIBERCEPT) [Suspect]
     Dosage: INTRAVITREAL

REACTIONS (2)
  - Eye inflammation [None]
  - Blindness [None]
